FAERS Safety Report 5379448-7 (Version None)
Quarter: 2007Q3

REPORT INFORMATION
  Report Type: 
  Country: None (occurrence: None)
  Receive Date: 20070703
  Receipt Date: 20070605
  Transmission Date: 20080115
  Serious: Yes (Hospitalization)
  Sender: FDA-Public Use
  Company Number: TPA2006A00358

PATIENT
  Age: 71 Year
  Sex: Female
  Weight: 137.576 kg

DRUGS (21)
  1. ACTOS [Suspect]
     Dosage: PER ORAL
     Route: 048
     Dates: start: 20010101, end: 20060101
  2. HUMALOG [Suspect]
     Indication: DIABETES MELLITUS
     Dosage: SEE IMAGE
     Dates: start: 20010101
  3. PREDNISONE TAB [Suspect]
     Indication: INFLAMMATION
     Dosage: 16-20 MG, 1 IN 1 D
     Dates: start: 20010101
  4. PREDNISONE TAB [Suspect]
     Indication: RHEUMATOID ARTHRITIS
     Dosage: 16-20 MG, 1 IN 1 D
     Dates: start: 20010101
  5. ENBREL [Suspect]
     Dates: start: 20020101, end: 20050101
  6. MERCAPTOPURINE [Suspect]
     Dosage: PER RECTAL
     Route: 054
  7. PREDNISONE TAB [Suspect]
     Indication: COLITIS ULCERATIVE
  8. HUMULIN R [Suspect]
     Dosage: 100U/ML, 10ML X 1 VIAL AMF
  9. ASACOL [Concomitant]
  10. COZAAR [Concomitant]
  11. LANTUS [Concomitant]
  12. SOMA [Concomitant]
  13. ATARAX [Concomitant]
  14. NEURONTIN [Concomitant]
  15. ACETAMINOPHEN [Concomitant]
  16. Q10 (UBIDECARENONE) [Concomitant]
  17. FOLIC ACID [Concomitant]
  18. UNKNOWN DIURETICS (DIURETICS) [Concomitant]
  19. ROBAXIN [Concomitant]
  20. GLUCOPHAGE [Concomitant]
  21. ACTONEL [Concomitant]

REACTIONS (16)
  - ALOPECIA [None]
  - BLOOD GLUCOSE INCREASED [None]
  - COLITIS ULCERATIVE [None]
  - CRYING [None]
  - CUSHING'S SYNDROME [None]
  - DRUG INEFFECTIVE [None]
  - HERPES ZOSTER [None]
  - INFLAMMATION [None]
  - PAIN [None]
  - PROTEIN URINE PRESENT [None]
  - PYREXIA [None]
  - RASH [None]
  - RHEUMATOID ARTHRITIS [None]
  - RIB FRACTURE [None]
  - SPINAL FRACTURE [None]
  - WEIGHT INCREASED [None]
